FAERS Safety Report 21763490 (Version 3)
Quarter: 2024Q4

REPORT INFORMATION
  Report Type: Report from Study
  Country: US (occurrence: US)
  Receive Date: 20221221
  Receipt Date: 20241106
  Transmission Date: 20250114
  Serious: Yes (Hospitalization, Other)
  Sender: ABBVIE
  Company Number: US-ABBVIE-4244615

PATIENT
  Age: 49 Year
  Sex: Female

DRUGS (2)
  1. HUMIRA [Suspect]
     Active Substance: ADALIMUMAB
     Indication: Rheumatoid arthritis
     Dosage: FORM STRENGTH: 40 MILLIGRAM LAST ADMIN DATE: OCT 2021
     Route: 058
     Dates: start: 20211026
  2. HUMIRA [Suspect]
     Active Substance: ADALIMUMAB
     Dosage: FORM STRENGTH: 40 MILLIGRAM
     Route: 058
     Dates: start: 20211027

REACTIONS (6)
  - Choking [Not Recovered/Not Resolved]
  - Basal cell carcinoma [Recovered/Resolved]
  - Pain [Recovering/Resolving]
  - Finger deformity [Not Recovered/Not Resolved]
  - Blood pressure abnormal [Unknown]
  - Angioedema [Not Recovered/Not Resolved]

NARRATIVE: CASE EVENT DATE: 20220621
